FAERS Safety Report 8844368 (Version 1)
Quarter: 2012Q4

REPORT INFORMATION
  Report Type: Spontaneous
  Country: US (occurrence: None)
  Receive Date: 20121017
  Receipt Date: 20121017
  Transmission Date: 20130627
  Serious: Yes (Other)
  Sender: FDA-Public Use
  Company Number: None

PATIENT
  Sex: Male

DRUGS (2)
  1. CLINDAMYCIN [Suspect]
     Indication: WOUND DEBRIDEMENT
     Route: 061
     Dates: start: 20120911, end: 20121016
  2. CLINDAMYCIN [Suspect]
     Route: 061
     Dates: start: 20120911, end: 20121016

REACTIONS (8)
  - Influenza like illness [None]
  - Eye irritation [None]
  - Headache [None]
  - Pain [None]
  - Pyrexia [None]
  - Chills [None]
  - Hyperhidrosis [None]
  - Erythema [None]
